FAERS Safety Report 6704207-X (Version None)
Quarter: 2010Q2

REPORT INFORMATION
  Report Type: 
  Country: None (occurrence: None)
  Receive Date: 20100430
  Receipt Date: 20100428
  Transmission Date: 20101027
  Serious: Yes (Death)
  Sender: FDA-Public Use
  Company Number: JP-JNJFOC-20090405183

PATIENT
  Sex: Female
  Weight: 13 kg

DRUGS (19)
  1. ITRIZOLE [Interacting]
     Indication: INFECTION PROPHYLAXIS
     Dosage: 0.5 ML/KG TWICE DAILY (MAXIMUM OF 20 ML/DAY)
     Route: 048
  2. VINCRISTINE SULFATE [Interacting]
     Indication: ACUTE LYMPHOCYTIC LEUKAEMIA
     Route: 042
  3. VINCRISTINE SULFATE [Interacting]
     Indication: NEOPLASM MALIGNANT
     Route: 042
  4. ELSPAR [Suspect]
     Indication: ACUTE LYMPHOCYTIC LEUKAEMIA
     Route: 030
  5. ELSPAR [Suspect]
     Indication: NEOPLASM MALIGNANT
     Route: 030
  6. ALLOPURINOL [Concomitant]
     Indication: PROPHYLAXIS
     Route: 048
  7. COTRIM [Concomitant]
     Indication: PROPHYLAXIS
     Route: 048
  8. PREDONINE [Concomitant]
     Indication: ACUTE LYMPHOCYTIC LEUKAEMIA
     Route: 042
  9. PREDONINE [Concomitant]
     Route: 042
  10. PREDONINE [Concomitant]
     Route: 042
  11. PREDONINE [Concomitant]
     Route: 042
  12. PREDONINE [Concomitant]
     Route: 048
  13. PREDONINE [Concomitant]
     Route: 048
  14. DECADRON [Concomitant]
     Indication: ACUTE LYMPHOCYTIC LEUKAEMIA
     Route: 042
  15. PINORUBIN [Concomitant]
     Indication: ACUTE LYMPHOCYTIC LEUKAEMIA
     Route: 042
  16. ENDOXANA [Concomitant]
     Indication: ACUTE LYMPHOCYTIC LEUKAEMIA
     Route: 042
  17. FIRSTCIN [Concomitant]
     Indication: PROPHYLAXIS
     Route: 042
  18. TAZOCIN [Concomitant]
     Indication: PROPHYLAXIS
     Route: 042
  19. MODACIN [Concomitant]
     Indication: PROPHYLAXIS
     Route: 042

REACTIONS (9)
  - DRUG INTERACTION [None]
  - GASTROINTESTINAL HAEMORRHAGE [None]
  - HAEMOGLOBIN DECREASED [None]
  - HEPATIC FAILURE [None]
  - HEPATIC STEATOSIS [None]
  - PYREXIA [None]
  - RESPIRATORY FAILURE [None]
  - THROMBOCYTOPENIA [None]
  - WHITE BLOOD CELL COUNT DECREASED [None]
